FAERS Safety Report 6925029-0 (Version None)
Quarter: 2010Q3

REPORT INFORMATION
  Report Type: 
  Country: None (occurrence: None)
  Receive Date: 20100816
  Receipt Date: 20100804
  Transmission Date: 20110219
  Serious: Yes (Life-Threatening, Hospitalization)
  Sender: FDA-Public Use
  Company Number: JP-PFIZER INC-2010031969

PATIENT
  Age: 67 Year
  Sex: Female
  Weight: 51 kg

DRUGS (9)
  1. EXEMESTANE [Suspect]
     Indication: BREAST CANCER
     Dosage: 25 MG, 1X/DAY
     Route: 048
     Dates: start: 20100306, end: 20100310
  2. GASTER [Suspect]
     Dosage: UNK
  3. ASPIRIN [Concomitant]
     Indication: MYOCARDIAL INFARCTION
     Dosage: 100 MG, 1X/DAY
     Route: 048
     Dates: end: 20100310
  4. ASPIRIN [Concomitant]
     Dosage: 100 MG, 1X/DAY
     Route: 048
     Dates: start: 20100320
  5. DIGOSIN [Concomitant]
     Indication: ATRIAL FIBRILLATION
     Dosage: 0.25 MG, 1X/DAY
     Route: 048
  6. RENIVACE [Concomitant]
     Indication: HYPERTENSION
     Dosage: 5 MG, 1X/DAY
     Route: 048
  7. ITOROL [Concomitant]
     Indication: MYOCARDIAL INFARCTION
     Dosage: 20 MG, 2X/DAY
     Route: 048
  8. LASIX [Concomitant]
     Indication: HYPERTENSION
     Dosage: 20 MG, 1X/DAY
     Route: 048
     Dates: start: 20080225
  9. MARZULENE S [Concomitant]
     Indication: GASTRITIS
     Dosage: 0.5 G, 2X/DAY
     Route: 048

REACTIONS (1)
  - PLATELET COUNT DECREASED [None]
